FAERS Safety Report 10370281 (Version 1)
Quarter: 2014Q1

REPORT INFORMATION
  Report Type: Spontaneous
  Country: US (occurrence: None)
  Receive Date: 20140306
  Receipt Date: 20140306
  Transmission Date: 20141002
  Serious: Yes (Other)
  Sender: FDA-Public Use
  Company Number: 163-21880-13080683

PATIENT
  Age: 85 Year
  Sex: Male

DRUGS (13)
  1. REVLIMID [Suspect]
     Indication: MYELODYSPLASTIC SYNDROME
     Route: 048
     Dates: start: 20130516
  2. HYDROCODONE ACETAMINOPHEN (VICODIN) (TABLETS) [Concomitant]
  3. ASPIRIN (ACETYLSALICYLIC ACID) (TABLETS) [Concomitant]
  4. ZOCOR (SIMVASTATIN) (TABLETS) [Concomitant]
  5. ZYLOPRIM (ALLOPURINOL) (TABLETS) [Concomitant]
  6. FERROUS SULFATE (FERROUS SULFATE) (TABLETS) [Concomitant]
  7. ZYVOX (LINEZOLID) (TABLETS) [Concomitant]
  8. PRILOSEC (OMEPRAZOLE) (TABLETS) [Concomitant]
  9. POTASSIUM CHLORIDE (POTASSIUM CHLORIDE) [Concomitant]
  10. MULTIPLE VITAMINS W/MINERALS (MULTIVITAMINS WITH MINERALS) (TABLETS) [Concomitant]
  11. LASIX (FUROSEMIDE) (TABLETS) [Concomitant]
  12. LEVOTHYROXINE (LEVOTHYROXINE) [Concomitant]
  13. MIRALAX (MACROGOL) [Concomitant]

REACTIONS (2)
  - Haemoglobin decreased [None]
  - Skin ulcer [None]
